FAERS Safety Report 5062221-7 (Version None)
Quarter: 2006Q3

REPORT INFORMATION
  Report Type: 
  Country: None (occurrence: None)
  Receive Date: 20060726
  Receipt Date: 20060721
  Transmission Date: 20061208
  Serious: Yes (Other)
  Sender: FDA-Public Use
  Company Number: US-KINGPHARMUSA00001-K200600947

PATIENT

DRUGS (2)
  1. SEPTRA [Suspect]
     Indication: PROPHYLAXIS
     Dosage: 480 MG, BID, M/W/F
     Route: 048
  2. CHEMOTHERAPY [Concomitant]

REACTIONS (1)
  - DEAFNESS [None]
